FAERS Safety Report 4876322-7 (Version None)
Quarter: 2006Q1

REPORT INFORMATION
  Report Type: 
  Country: None (occurrence: None)
  Receive Date: 20060110
  Receipt Date: 20051223
  Transmission Date: 20060701
  Serious: Yes (Hospitalization)
  Sender: FDA-Public Use
  Company Number: PHRM2005FR03362

PATIENT
  Age: 65 Year
  Sex: Male

DRUGS (7)
  1. ALDACTONE [Concomitant]
     Indication: HYPERTENSION
     Dosage: 25 MG, QD
     Route: 048
     Dates: start: 20050827, end: 20051003
  2. OFLOCET [Concomitant]
     Indication: SKIN LESION
     Dosage: 200 MG, BID
     Route: 048
     Dates: start: 20051104, end: 20051108
  3. OGAST [Suspect]
     Indication: GASTRIC ULCER
     Dosage: 30 MG, QD
     Route: 048
     Dates: start: 20050827, end: 20051121
  4. MONO-TILDIEM [Suspect]
     Indication: HYPERTENSION
     Dosage: 200 MG, QD
     Route: 048
     Dates: end: 20051121
  5. REVIA [Concomitant]
     Indication: ALCOHOLISM
     Dosage: 50 MG, QD
     Route: 048
     Dates: start: 20051104, end: 20051117
  6. LEVOTHYROXINE SODIUM [Concomitant]
     Dosage: 175 A?G/DAY
     Route: 048
  7. TAREG [Suspect]
     Indication: HYPERTENSION
     Dosage: 80 MG, QD
     Route: 048
     Dates: end: 20051121

REACTIONS (6)
  - CUTANEOUS VASCULITIS [None]
  - HYPERKERATOSIS [None]
  - LEUKOCYTOCLASTIC VASCULITIS [None]
  - RASH ERYTHEMATOUS [None]
  - SKIN ULCER [None]
  - VASCULAR PURPURA [None]
